FAERS Safety Report 4882456-3 (Version None)
Quarter: 2006Q1

REPORT INFORMATION
  Report Type: 
  Country: None (occurrence: None)
  Receive Date: 20060117
  Receipt Date: 20060109
  Transmission Date: 20060701
  Serious: Yes (Hospitalization)
  Sender: FDA-Public Use
  Company Number: AU-ABBOTT-06P-008-0321733-00

PATIENT
  Weight: 9 kg

DRUGS (3)
  1. SEVORANE LIQUID FOR INHALATION [Suspect]
     Indication: SENSORY DISTURBANCE
     Dates: start: 20040205, end: 20040205
  2. LIDOCAINE [Suspect]
     Indication: DRUG USE FOR UNKNOWN INDICATION
     Dates: start: 20040205, end: 20040205
  3. OMEPRAZOLE [Suspect]
     Indication: DRUG USE FOR UNKNOWN INDICATION
     Dates: start: 20040205, end: 20040205

REACTIONS (1)
  - ILEUS [None]
